FAERS Safety Report 16089558 (Version 3)
Quarter: 2019Q2

REPORT INFORMATION
  Report Type: Spontaneous
  Country: US (occurrence: US)
  Receive Date: 20190319
  Receipt Date: 20190418
  Transmission Date: 20190711
  Serious: Yes (Other)
  Sender: FDA-Public Use
  Company Number: US-GLENMARK PHARMACEUTICALS-2019GMK040138

PATIENT

DRUGS (4)
  1. NAPROXEN TABLETS USP [Suspect]
     Active Substance: NAPROXEN
     Indication: PAIN
     Dosage: 500 MG, QD
     Route: 048
     Dates: start: 20190228, end: 20190228
  2. TESTOSTERONE. [Concomitant]
     Active Substance: TESTOSTERONE
     Indication: ANDROGEN DEFICIENCY
  3. NAPROXEN TABLETS USP [Suspect]
     Active Substance: NAPROXEN
     Indication: SMOKING CESSATION THERAPY
  4. TESTOSTERONE. [Concomitant]
     Active Substance: TESTOSTERONE
     Indication: BONE PAIN
     Dosage: UNK
     Route: 065

REACTIONS (13)
  - Helplessness [Recovering/Resolving]
  - Disturbance in attention [Recovering/Resolving]
  - Hallucination [Recovering/Resolving]
  - Toxicity to various agents [Recovered/Resolved]
  - Impaired driving ability [Recovering/Resolving]
  - Asthenia [Recovering/Resolving]
  - Product use in unapproved indication [Unknown]
  - Pulmonary toxicity [Recovered/Resolved]
  - Cardiac disorder [Recovering/Resolving]
  - Cerebral disorder [Recovering/Resolving]
  - Respiratory rate decreased [Recovering/Resolving]
  - Tremor [Recovering/Resolving]
  - Cardiac discomfort [Recovering/Resolving]

NARRATIVE: CASE EVENT DATE: 20190228
